FAERS Safety Report 4911683-1 (Version None)
Quarter: 2006Q1

REPORT INFORMATION
  Report Type: 
  Country: None (occurrence: None)
  Receive Date: 20060213
  Receipt Date: 20060130
  Transmission Date: 20060701
  Serious: Yes (Other)
  Sender: FDA-Public Use
  Company Number: 2006015700

PATIENT
  Sex: Male
  Weight: 81.6475 kg

DRUGS (5)
  1. VIAGRA [Suspect]
     Indication: ILL-DEFINED DISORDER
     Dosage: 25 MG (25 MG)
  2. MICARDIS [Concomitant]
  3. TAMSULOSIN HCL [Concomitant]
  4. HYDROCHLOROTHIAZIDE [Concomitant]
  5. METOPROLOL (METOPROLOL) [Concomitant]

REACTIONS (1)
  - ARTHRITIS [None]
